FAERS Safety Report 21865873 (Version 1)
Quarter: 2023Q1

REPORT INFORMATION
  Report Type: Spontaneous
  Country: DE (occurrence: DE)
  Receive Date: 20230116
  Receipt Date: 20230116
  Transmission Date: 20230417
  Serious: Yes (Death, Other)
  Sender: FDA-Public Use
  Company Number: DE-AMGEN-DEUSP2022197911

PATIENT

DRUGS (4)
  1. XGEVA [Suspect]
     Active Substance: DENOSUMAB
     Indication: Product used for unknown indication
     Dosage: 120 MILLIGRAM, Q4WK
     Route: 058
  2. AMLODIPINE BESYLATE [Suspect]
     Active Substance: AMLODIPINE BESYLATE
     Indication: Product used for unknown indication
     Route: 065
  3. ZOMETA [Suspect]
     Active Substance: ZOLEDRONIC ACID
     Indication: Product used for unknown indication
     Route: 065
  4. AREDIA [Concomitant]
     Active Substance: PAMIDRONATE DISODIUM
     Indication: Product used for unknown indication
     Dosage: 90 MILLIGRAM/100 ML, Q4WK
     Route: 065

REACTIONS (9)
  - Death [Fatal]
  - Renal cell carcinoma [Unknown]
  - Non-small cell lung cancer [Unknown]
  - Diabetes mellitus [Unknown]
  - Osteonecrosis of jaw [Unknown]
  - Adverse event [Unknown]
  - Dehiscence [Unknown]
  - Rheumatic disorder [Unknown]
  - Osteoporosis [Unknown]
